FAERS Safety Report 5417960-2 (Version None)
Quarter: 2007Q3

REPORT INFORMATION
  Report Type: 
  Country: None (occurrence: None)
  Receive Date: 20070817
  Receipt Date: 20070807
  Transmission Date: 20080115
  Serious: Yes (Other)
  Sender: FDA-Public Use
  Company Number: IT-NOVOPROD-266271

PATIENT
  Sex: Female

DRUGS (1)
  1. NOVORAPID FLEXPEN [Suspect]
     Indication: DRUG USE FOR UNKNOWN INDICATION

REACTIONS (2)
  - MEDICAL DEVICE COMPLICATION [None]
  - METABOLIC DISORDER [None]
